FAERS Safety Report 13923984 (Version 2)
Quarter: 2017Q3

REPORT INFORMATION
  Report Type: Spontaneous
  Country: US (occurrence: US)
  Receive Date: 20170831
  Receipt Date: 20170911
  Transmission Date: 20171127
  Serious: Yes (Other)
  Sender: FDA-Public Use
  Company Number: US-AUROBINDO-AUR-APL-2017-39628

PATIENT
  Age: 66 Year
  Sex: Male

DRUGS (2)
  1. OXYCODONE [Suspect]
     Active Substance: OXYCODONE
     Indication: WOUND COMPLICATION
     Dosage: SINGLE DOSE
     Route: 065
  2. NALTREXONE [Interacting]
     Active Substance: NALTREXONE
     Indication: MULTIPLE SCLEROSIS
     Route: 065

REACTIONS (2)
  - Drug interaction [Recovered/Resolved]
  - Unresponsive to stimuli [Recovered/Resolved]
